FAERS Safety Report 6439823-6 (Version None)
Quarter: 2009Q4

REPORT INFORMATION
  Report Type: 
  Country: None (occurrence: None)
  Receive Date: 20091112
  Receipt Date: 20091112
  Transmission Date: 20100525
  Serious: Yes (Life-Threatening, Hospitalization)
  Sender: FDA-Public Use
  Company Number: None

PATIENT
  Age: 50 Year
  Sex: Female
  Weight: 60.8 kg

DRUGS (6)
  1. INVANZ [Suspect]
     Indication: DEVICE RELATED INFECTION
     Dosage: IV
     Route: 042
     Dates: start: 20090915, end: 20091018
  2. VANCOMYCIN [Suspect]
     Indication: DEVICE RELATED INFECTION
     Dosage: IV
     Route: 042
     Dates: start: 20090915, end: 20091018
  3. TOPIRAMATE [Concomitant]
  4. GABAPENTIN [Concomitant]
  5. IBUPROFEN [Concomitant]
  6. VITAMIN TAB [Concomitant]

REACTIONS (1)
  - STEVENS-JOHNSON SYNDROME [None]
